FAERS Safety Report 18671542 (Version 1)
Quarter: 2020Q4

REPORT INFORMATION
  Report Type: Spontaneous
  Country: PT (occurrence: PT)
  Receive Date: 20201228
  Receipt Date: 20201228
  Transmission Date: 20210114
  Serious: Yes (Other)
  Sender: FDA-Public Use
  Company Number: NVSC2020PT338084

PATIENT
  Age: 40 Year
  Sex: Female

DRUGS (1)
  1. SECUKINUMAB. [Suspect]
     Active Substance: SECUKINUMAB
     Indication: ANKYLOSING SPONDYLITIS
     Dosage: 2 DF (150MG)
     Route: 065

REACTIONS (6)
  - Urticaria [Unknown]
  - Respiratory tract infection [Unknown]
  - Hypersensitivity [Unknown]
  - Dyspnoea [Unknown]
  - Pain [Unknown]
  - Skin reaction [Unknown]
